FAERS Safety Report 4886084-5 (Version None)
Quarter: 2006Q1

REPORT INFORMATION
  Report Type: 
  Country: None (occurrence: None)
  Receive Date: 20060117
  Receipt Date: 20060110
  Transmission Date: 20060701
  Serious: Yes (Other)
  Sender: FDA-Public Use
  Company Number: 200610099GDS

PATIENT
  Age: 77 Year
  Sex: Female

DRUGS (5)
  1. AVELOX [Suspect]
     Indication: ATYPICAL MYCOBACTERIAL INFECTION
     Dosage: 400 MG, TOTAL DAILY, ORAL
     Route: 048
     Dates: start: 20050927, end: 20051129
  2. RIFAMPICIN [Concomitant]
  3. CLARITHROMYCIN [Concomitant]
  4. ETHAMBUTOL HCL [Concomitant]
  5. ^CURRIN INTRAVENOUS ANTIBIOTICS^ [Concomitant]

REACTIONS (7)
  - ABDOMINAL HERNIA [None]
  - ASTHENIA [None]
  - DISORIENTATION [None]
  - DIZZINESS [None]
  - MALAISE [None]
  - TREMOR [None]
  - WEIGHT DECREASED [None]
